FAERS Safety Report 8761902 (Version 3)
Quarter: 2012Q4

REPORT INFORMATION
  Report Type: 
  Country: JP (occurrence: JP)
  Receive Date: 20120830
  Receipt Date: 20120910
  Transmission Date: 20130627
  Serious: Yes (Other)
  Sender: FDA-Public Use
  Company Number: JP-PFIZER INC-2012212991

PATIENT
  Age: 63 Year
  Sex: Male

DRUGS (4)
  1. CADUET [Suspect]
     Indication: HYPERCHOLESTEROLAEMIA
     Dosage: 1 DF, daily
     Route: 048
     Dates: start: 201203
  2. CADUET [Suspect]
     Indication: HYPERTENSION
  3. MICOMBI COMBINATION [Suspect]
     Indication: HYPERTENSION
     Dosage: 1 DF, daily
     Route: 048
     Dates: start: 20120111, end: 20120615
  4. ZYLORIC ^FAES^ [Concomitant]
     Indication: HYPERURICAEMIA
     Dosage: 100 mg, daily
     Route: 048
     Dates: start: 200812

REACTIONS (1)
  - Melanoderma [Recovering/Resolving]
